FAERS Safety Report 8903914 (Version 1)
Quarter: 2012Q4

REPORT INFORMATION
  Report Type: 
  Country: AT (occurrence: AT)
  Receive Date: 20121112
  Receipt Date: 20121112
  Transmission Date: 20130627
  Serious: Yes (Other)
  Sender: FDA-Public Use
  Company Number: AT-B.I. PHARMACEUTICALS,INC./RIDGEFIELD-2012-BI-00005GD

PATIENT
  Age: 43 Year
  Sex: Male

DRUGS (2)
  1. TIOTROPIUM [Suspect]
     Indication: CHRONIC OBSTRUCTIVE PULMONARY DISEASE
     Dosage: 18 mcg
  2. FORMOTEROL [Suspect]
     Indication: CHRONIC OBSTRUCTIVE PULMONARY DISEASE
     Dosage: 24 mcg
     Route: 055
     Dates: start: 2010

REACTIONS (6)
  - Chronic obstructive pulmonary disease [Not Recovered/Not Resolved]
  - Chronic obstructive pulmonary disease [Unknown]
  - Dyspnoea exertional [Recovered/Resolved]
  - Fatigue [Recovered/Resolved]
  - Bronchitis [Unknown]
  - Bronchial obstruction [Unknown]
